FAERS Safety Report 6254660-3 (Version None)
Quarter: 2009Q3

REPORT INFORMATION
  Report Type: 
  Country: None (occurrence: None)
  Receive Date: 20090702
  Receipt Date: 20090622
  Transmission Date: 20100115
  Serious: Yes (Other)
  Sender: FDA-Public Use
  Company Number: D0061718A

PATIENT
  Sex: Male

DRUGS (1)
  1. ATMADISC MITE [Suspect]
     Route: 065

REACTIONS (4)
  - ACCIDENTAL OVERDOSE [None]
  - DIZZINESS [None]
  - HEART RATE INCREASED [None]
  - RESTLESSNESS [None]
